FAERS Safety Report 8241785-6 (Version None)
Quarter: 2012Q1

REPORT INFORMATION
  Report Type: 
  Country: None (occurrence: None)
  Receive Date: 20120328
  Receipt Date: 20120322
  Transmission Date: 20120608
  Serious: Yes (Hospitalization, Other)
  Sender: FDA-Public Use
  Company Number: US-AMGEN-USASP2011009965

PATIENT
  Age: 58 Year
  Sex: Male
  Weight: 86.621 kg

DRUGS (2)
  1. CALCIUM CARBONATE [Concomitant]
     Route: 048
  2. XGEVA [Suspect]
     Indication: METASTASES TO BONE
     Route: 058
     Dates: start: 20110209

REACTIONS (4)
  - HYPERKALAEMIA [None]
  - MENTAL STATUS CHANGES [None]
  - CONVULSION [None]
  - HYPOCALCAEMIA [None]
